FAERS Safety Report 8999204 (Version 2)
Quarter: 2013Q1

REPORT INFORMATION
  Report Type: Spontaneous
  Country: US (occurrence: US)
  Receive Date: 20130103
  Receipt Date: 20130308
  Transmission Date: 20140127
  Serious: No
  Sender: FDA-Public Use
  Company Number: US-ELI_LILLY_AND_COMPANY-US201301000404

PATIENT
  Age: 34 Year
  Sex: Female
  Weight: 109.75 kg

DRUGS (3)
  1. ZYPREXA RELPREVV [Suspect]
     Dosage: 300 MG, MONTHLY (1/M)
     Route: 030
     Dates: start: 20121207, end: 20121207
  2. ZYPREXA RELPREVV [Suspect]
     Dosage: 300 MG, MONTHLY (1/M)
     Route: 030
     Dates: start: 20121109, end: 20121109
  3. MEDFORMIN [Concomitant]
     Dosage: UNK, UNKNOWN

REACTIONS (5)
  - Injection site abscess [Recovered/Resolved]
  - Injection site pain [Unknown]
  - Blood glucose abnormal [Recovered/Resolved]
  - Weight increased [Unknown]
  - Somnolence [Recovered/Resolved]
